FAERS Safety Report 13936163 (Version 1)
Quarter: 2017Q3

REPORT INFORMATION
  Report Type: Spontaneous
  Country: US (occurrence: None)
  Receive Date: 20170905
  Receipt Date: 20170905
  Transmission Date: 20171127
  Serious: Yes (Hospitalization)
  Sender: FDA-Public Use
  Company Number: None

PATIENT
  Age: 40 Year
  Sex: Male
  Weight: 87.7 kg

DRUGS (9)
  1. LACTULOSE. [Concomitant]
     Active Substance: LACTULOSE
  2. ZOLOFT [Concomitant]
     Active Substance: SERTRALINE HYDROCHLORIDE
  3. FOLIC ACID. [Concomitant]
     Active Substance: FOLIC ACID
  4. EPCLUSA [Suspect]
     Active Substance: SOFOSBUVIR\VELPATASVIR
     Indication: HEPATITIS C
     Dosage: END DATE OF USE GIVEN 9/21/2017 IS GREATER THAN CURRENT DATE ?OMITTED DATE??400MG/100MG QD ORAL
     Route: 048
     Dates: start: 20170406, end: 201709
  5. CIPROFLOXACIN. [Concomitant]
     Active Substance: CIPROFLOXACIN
  6. NALTREXONE [Concomitant]
     Active Substance: NALTREXONE
  7. VITAMIN B [Concomitant]
     Active Substance: VITAMIN B
  8. MULTIVITAMIN [Concomitant]
     Active Substance: VITAMINS
  9. PROPRANOLOL [Concomitant]
     Active Substance: PROPRANOLOL HYDROCHLORIDE

REACTIONS (2)
  - Varices oesophageal [None]
  - Haematemesis [None]

NARRATIVE: CASE EVENT DATE: 20170604
